FAERS Safety Report 20150868 (Version 2)
Quarter: 2021Q4

REPORT INFORMATION
  Report Type: Spontaneous
  Country: EG (occurrence: EG)
  Receive Date: 20211206
  Receipt Date: 20211217
  Transmission Date: 20220303
  Serious: Yes (Other)
  Sender: FDA-Public Use
  Company Number: EG-NOVARTISPH-NVSC2021EG273664

PATIENT
  Age: 34 Year
  Sex: Male

DRUGS (10)
  1. NEORAL [Suspect]
     Active Substance: CYCLOSPORINE
     Indication: Psoriasis
     Dosage: 102 DOSAGE FORM, BID
     Route: 048
     Dates: start: 2016, end: 2020
  2. COSENTYX [Concomitant]
     Active Substance: SECUKINUMAB
     Indication: Product used for unknown indication
     Dosage: 150 MG
     Route: 065
  3. GLIPTUS PLUS [Concomitant]
     Indication: Diabetes mellitus
     Dosage: 1 DOSAGE FORM, BID
     Route: 048
  4. DICROME [Concomitant]
     Indication: Diabetes mellitus
     Dosage: 1 DOSAGE FORM, QD
     Route: 048
  5. DIMECRON [Concomitant]
     Indication: Diabetes mellitus
     Dosage: 1.5 DOSAGE FORM, QD
     Route: 048
  6. COFRON [Concomitant]
     Indication: Hypertension
     Dosage: 1 DOSAGE FORM, QD
     Route: 048
  7. TRENTAL [Concomitant]
     Active Substance: PENTOXIFYLLINE
     Indication: Neuritis
     Dosage: 1 DOSAGE FORM, BID
     Route: 048
  8. OMEGA 3 PLUS [Concomitant]
     Indication: Prophylaxis
     Dosage: 1 DOSAGE FORM, TID
     Route: 065
  9. BON ONE [Concomitant]
     Indication: Renal disorder
     Dosage: 1 DOSAGE FORM, QD
     Route: 048
  10. AMARYL [Concomitant]
     Active Substance: GLIMEPIRIDE
     Indication: Product used for unknown indication
     Route: 065

REACTIONS (7)
  - Hepatic steatosis [Recovering/Resolving]
  - Renal impairment [Recovering/Resolving]
  - Blood creatinine increased [Recovering/Resolving]
  - Hepatic enzyme increased [Recovering/Resolving]
  - Glycosylated haemoglobin increased [Not Recovered/Not Resolved]
  - Blood glucose abnormal [Not Recovered/Not Resolved]
  - Suspected COVID-19 [Recovered/Resolved]

NARRATIVE: CASE EVENT DATE: 20200801
